FAERS Safety Report 5395263-2 (Version None)
Quarter: 2007Q3

REPORT INFORMATION
  Report Type: 
  Country: None (occurrence: None)
  Receive Date: 20070724
  Receipt Date: 20070525
  Transmission Date: 20080115
  Serious: Yes (Life-Threatening, Other)
  Sender: FDA-Public Use
  Company Number: PL-ASTRAZENECA-2005AP06380

PATIENT
  Age: 20368 Day
  Sex: Male

DRUGS (22)
  1. IRESSA [Suspect]
     Indication: OROPHARYNGEAL CANCER STAGE UNSPECIFIED
     Route: 048
     Dates: start: 20051014, end: 20051202
  2. IRESSA [Suspect]
     Route: 048
     Dates: start: 20051214
  3. CISPLATIN [Suspect]
     Indication: OROPHARYNGEAL CANCER STAGE UNSPECIFIED
     Route: 042
     Dates: start: 20051024, end: 20051024
  4. CISPLATIN [Suspect]
     Route: 042
     Dates: start: 20051114, end: 20051114
  5. RADIOTHERAPY [Suspect]
     Indication: OROPHARYNGEAL CANCER STAGE UNSPECIFIED
     Dosage: 2 GY
     Dates: start: 20051024, end: 20051028
  6. RADIOTHERAPY [Suspect]
     Dosage: 2 GY
     Dates: start: 20051031, end: 20051104
  7. RADIOTHERAPY [Suspect]
     Dosage: 2 GY NOT GIVEN 11 NOV 2005 DUE TO BANK HOLIDAY
     Dates: start: 20051107, end: 20051110
  8. RADIOTHERAPY [Suspect]
     Dosage: 2 GY
     Dates: start: 20051114, end: 20051118
  9. RADIOTHERAPY [Suspect]
     Dosage: 2 GY
     Dates: start: 20051121, end: 20051125
  10. RADIOTHERAPY [Suspect]
     Dosage: 2 GY
     Dates: start: 20051128, end: 20051202
  11. RADIOTHERAPY [Suspect]
     Dosage: 2 GY NOT GIVEN ON SAT 17 AND SUN 18 DEC 05
     Dates: start: 20051214, end: 20051220
  12. FUROSEMIDUM [Concomitant]
     Indication: RENAL FAILURE
     Route: 042
     Dates: start: 20051104
  13. FUROSEMIDUM [Concomitant]
     Indication: CARDIAC FAILURE
     Route: 042
     Dates: start: 20051104
  14. DOXYCILIN [Concomitant]
     Indication: ACNE
     Route: 048
     Dates: start: 20051110, end: 20051116
  15. LOPERAMIDE HCL [Concomitant]
     Indication: DIARRHOEA
     Route: 048
     Dates: start: 20051118
  16. LACCID [Concomitant]
     Indication: ANTIBIOTIC PROPHYLAXIS
     Route: 048
     Dates: start: 20051118
  17. BROMHEXINE HYDROCHLORIDE [Concomitant]
     Indication: COUGH
     Route: 048
     Dates: start: 20051102, end: 20051107
  18. ZYRTEC [Concomitant]
     Indication: HYPERSENSITIVITY
     Route: 048
     Dates: start: 20051102, end: 20051122
  19. RINGER SOLUTION [Concomitant]
     Indication: DYSPHAGIA
     Route: 042
     Dates: start: 20051104
  20. DEXTROSE 5% [Concomitant]
     Indication: DYSPHAGIA
     Route: 042
     Dates: start: 20051104
  21. THIETHYLPERAZINE [Concomitant]
     Indication: NAUSEA
     Route: 030
     Dates: start: 20051118
  22. THIETHYLPERAZINE [Concomitant]
     Indication: VOMITING
     Route: 030
     Dates: start: 20051118

REACTIONS (1)
  - ACUTE PRERENAL FAILURE [None]
